FAERS Safety Report 19981857 (Version 3)
Quarter: 2021Q4

REPORT INFORMATION
  Report Type: Report from Study
  Country: LB (occurrence: LB)
  Receive Date: 20211022
  Receipt Date: 20211218
  Transmission Date: 20220304
  Serious: Yes (Hospitalization)
  Sender: FDA-Public Use
  Company Number: LB-NOVARTISPH-NVSC2021LB234671

PATIENT
  Age: 33 Year
  Sex: Male
  Weight: 140 kg

DRUGS (4)
  1. COSENTYX [Suspect]
     Active Substance: SECUKINUMAB
     Indication: Ankylosing spondylitis
     Dosage: 150 MG, QMO
     Route: 058
     Dates: start: 20190828
  2. COSENTYX [Suspect]
     Active Substance: SECUKINUMAB
     Dosage: UNK
     Route: 065
     Dates: start: 20210718
  3. COSENTYX [Suspect]
     Active Substance: SECUKINUMAB
     Dosage: UNK
     Route: 065
     Dates: start: 20211002
  4. CEFTRIAXONE SODIUM [Concomitant]
     Active Substance: CEFTRIAXONE SODIUM
     Indication: Product used for unknown indication
     Dosage: UNK
     Route: 065

REACTIONS (11)
  - Peritonitis [Recovered/Resolved]
  - Skin infection [Recovered/Resolved]
  - Peritonitis [Recovered/Resolved]
  - Skin infection [Recovered/Resolved]
  - Peritonitis [Recovered/Resolved]
  - Skin infection [Recovered/Resolved]
  - Pain [Unknown]
  - Oedema [Unknown]
  - Infection [Unknown]
  - Rash [Unknown]
  - Pyrexia [Unknown]

NARRATIVE: CASE EVENT DATE: 20210916
